FAERS Safety Report 18440085 (Version 3)
Quarter: 2021Q3

REPORT INFORMATION
  Report Type: Report from Study
  Country: CA (occurrence: CA)
  Receive Date: 20201029
  Receipt Date: 20210917
  Transmission Date: 20211014
  Serious: Yes (Other)
  Sender: FDA-Public Use
  Company Number: CA-GLAXOSMITHKLINE-CA2020AMR211616

PATIENT
  Sex: Male
  Weight: 86.8 kg

DRUGS (5)
  1. ADVAIR HFA [Suspect]
     Active Substance: FLUTICASONE PROPIONATE\SALMETEROL XINAFOATE
     Indication: PRODUCT USED FOR UNKNOWN INDICATION
     Dosage: 2 PUFF(S), BID, 500 MCG
  2. NUCALA [Concomitant]
     Active Substance: MEPOLIZUMAB
     Indication: ASTHMA
     Dosage: 100 MG,EVERY 4 WEEKS
     Route: 058
     Dates: start: 20201102
  3. SALBUTAMOL SULPHATE [Suspect]
     Active Substance: ALBUTEROL SULFATE
     Indication: PRODUCT USED FOR UNKNOWN INDICATION
     Dosage: UNK, 100 MCG AS NEEDED
  4. PREDNISONE. [Suspect]
     Active Substance: PREDNISONE
     Indication: ASTHMA
     Dosage: UNK, AS NEEDED
  5. SPIRIVA [Suspect]
     Active Substance: TIOTROPIUM BROMIDE MONOHYDRATE
     Indication: ASTHMA
     Dosage: 18 UG, QD

REACTIONS (12)
  - Chest discomfort [Recovering/Resolving]
  - Functional residual capacity increased [Unknown]
  - Dyspnoea [Recovering/Resolving]
  - Loss of personal independence in daily activities [Recovering/Resolving]
  - Throat clearing [Unknown]
  - Therapeutic product effect incomplete [Unknown]
  - Sleep disorder due to a general medical condition [Recovering/Resolving]
  - Asthma [Recovering/Resolving]
  - Obstructive airways disorder [Unknown]
  - Cough [Recovering/Resolving]
  - Lung diffusion test decreased [Unknown]
  - Wheezing [Recovering/Resolving]
